FAERS Safety Report 6727010-3 (Version None)
Quarter: 2010Q2

REPORT INFORMATION
  Report Type: 
  Country: None (occurrence: None)
  Receive Date: 20100517
  Receipt Date: 20100504
  Transmission Date: 20101027
  Serious: Yes (Hospitalization)
  Sender: FDA-Public Use
  Company Number: DE-JNJFOC-20100505286

PATIENT
  Age: 47 Year
  Sex: Male
  Weight: 109 kg

DRUGS (6)
  1. INFLIXIMAB [Suspect]
     Indication: ANKYLOSING SPONDYLITIS
     Route: 042
  2. INFLIXIMAB [Suspect]
     Route: 042
  3. INFLIXIMAB [Suspect]
     Indication: COLITIS ULCERATIVE
     Route: 042
  4. INFLIXIMAB [Suspect]
     Route: 042
  5. SULFASALAZINE [Concomitant]
  6. AZATHIOPRINE [Concomitant]

REACTIONS (1)
  - METASTATIC MALIGNANT MELANOMA [None]
